FAERS Safety Report 8552405-5 (Version None)
Quarter: 2012Q3

REPORT INFORMATION
  Report Type: 
  Country: None (occurrence: None)
  Receive Date: 20120731
  Receipt Date: 20120719
  Transmission Date: 20120928
  Serious: No
  Sender: FDA-Public Use
  Company Number: US-JNJFOC-20120710237

PATIENT
  Sex: Female
  Weight: 65.32 kg

DRUGS (2)
  1. DILAUDID [Concomitant]
     Indication: PAIN
     Dosage: 4 MG EVERY 4 HOURS AS NEEDED
     Route: 048
     Dates: start: 20120101
  2. DURAGESIC-100 [Suspect]
     Indication: CANCER PAIN
     Route: 062
     Dates: start: 20120601

REACTIONS (4)
  - PAIN [None]
  - DRUG DOSE OMISSION [None]
  - DRUG INEFFECTIVE [None]
  - PRODUCT QUALITY ISSUE [None]
